FAERS Safety Report 8534683-1 (Version None)
Quarter: 2012Q3

REPORT INFORMATION
  Report Type: 
  Country: None (occurrence: None)
  Receive Date: 20120724
  Receipt Date: 20120717
  Transmission Date: 20120928
  Serious: Yes (Hospitalization)
  Sender: FDA-Public Use
  Company Number: US-GLAXOSMITHKLINE-A0980226A

PATIENT
  Age: 82 Year
  Sex: Female

DRUGS (7)
  1. VITAMIN A + D [Concomitant]
  2. DIOVAN [Concomitant]
  3. ASPIRIN [Concomitant]
  4. PREMARIN [Concomitant]
  5. HYDROCHLOROTHIAZIDE [Concomitant]
  6. COREG CR [Suspect]
     Indication: HYPERTENSION
     Dosage: 40MG PER DAY
     Route: 048
     Dates: start: 20100101
  7. CRANBERRY [Concomitant]

REACTIONS (1)
  - CORONARY ARTERY BYPASS [None]
